FAERS Safety Report 5917516-9 (Version None)
Quarter: 2008Q4

REPORT INFORMATION
  Report Type: 
  Country: None (occurrence: None)
  Receive Date: 20081010
  Receipt Date: 20081010
  Transmission Date: 20090506
  Serious: Yes (Other)
  Sender: FDA-Public Use
  Company Number: None

PATIENT
  Age: 42 Year
  Weight: 95.2554 kg

DRUGS (1)
  1. LEXAPRO [Suspect]
     Indication: DEPRESSION
     Dosage: 10-20MG DAILY PO
     Route: 048
     Dates: start: 20030101, end: 20080601

REACTIONS (3)
  - MACULOPATHY [None]
  - RETINAL DISORDER [None]
  - SCOTOMA [None]
